FAERS Safety Report 8494101-9 (Version None)
Quarter: 2012Q3

REPORT INFORMATION
  Report Type: 
  Country: None (occurrence: None)
  Receive Date: 20120702
  Receipt Date: 20120702
  Transmission Date: 20120928
  Serious: Yes (Other)
  Sender: FDA-Public Use
  Company Number: None

PATIENT
  Age: 14 Year
  Sex: Female
  Weight: 84.3 kg

DRUGS (1)
  1. PANCRELIPASE 27/5/17 X-GEN PHARMECEUTICALS [Suspect]
     Indication: PANCREATITIS
     Dosage: 50,000 UNITS TID WITH MEALS PO, 25000 UNNITS WITH SNACKS  PO
     Route: 048
     Dates: start: 20120701, end: 20120701

REACTIONS (5)
  - DIZZINESS [None]
  - SINUS DISORDER [None]
  - HEADACHE [None]
  - HYPERSENSITIVITY [None]
  - VISION BLURRED [None]
